FAERS Safety Report 15277086 (Version 3)
Quarter: 2018Q3

REPORT INFORMATION
  Report Type: Spontaneous
  Country: ES (occurrence: ES)
  Receive Date: 20180814
  Receipt Date: 20180910
  Transmission Date: 20181010
  Serious: Yes (Other)
  Sender: FDA-Public Use
  Company Number: ES-AMGEN-ESPSP2018102432

PATIENT
  Age: 60 Year
  Sex: Female

DRUGS (5)
  1. PROLIA [Suspect]
     Active Substance: DENOSUMAB
     Indication: OSTEOPOROSIS
     Dosage: UNK
     Route: 065
     Dates: start: 201711
  2. BINOSTO [Concomitant]
     Active Substance: ALENDRONATE SODIUM
  3. LYRICA [Concomitant]
     Active Substance: PREGABALIN
     Dosage: UNK
  4. LEXATIN [Concomitant]
     Dosage: UNK
     Dates: start: 201711
  5. ZOLEDRONIC ACID [Concomitant]
     Active Substance: ZOLEDRONIC ACID

REACTIONS (16)
  - Osteitis [Not Recovered/Not Resolved]
  - Osteoporosis [Unknown]
  - Muscle disorder [Unknown]
  - Feeling abnormal [Unknown]
  - Salivary gland disorder [Unknown]
  - Musculoskeletal stiffness [Not Recovered/Not Resolved]
  - Fibromyalgia [Unknown]
  - Melanocytic naevus [Unknown]
  - Jaw disorder [Unknown]
  - Tooth repair [Unknown]
  - Thyroid mass [Unknown]
  - Stomatitis [Not Recovered/Not Resolved]
  - Fatigue [Not Recovered/Not Resolved]
  - Hypoaesthesia [Unknown]
  - Loss of personal independence in daily activities [Not Recovered/Not Resolved]
  - Thyroid cyst [Unknown]

NARRATIVE: CASE EVENT DATE: 201806
